FAERS Safety Report 20761796 (Version 2)
Quarter: 2022Q2

REPORT INFORMATION
  Report Type: Spontaneous
  Country: FR (occurrence: FR)
  Receive Date: 20220428
  Receipt Date: 20220502
  Transmission Date: 20220721
  Serious: Yes (Hospitalization, Other)
  Sender: FDA-Public Use
  Company Number: FR-NOVARTISPH-NVSC2022FR095698

PATIENT
  Age: 79 Year
  Sex: Female
  Weight: 77.4 kg

DRUGS (13)
  1. ENTRESTO [Suspect]
     Active Substance: SACUBITRIL\VALSARTAN
     Indication: Cardiac failure
     Dosage: 200 MG (97/103 MG), BID (STOPPED BETWEEN 20 MAR 2022 AND 01 APR 2022)
     Route: 065
     Dates: start: 20160524
  2. ENTRESTO [Suspect]
     Active Substance: SACUBITRIL\VALSARTAN
     Dosage: 200 MG (97/103 MG), BID (STOPPED BETWEEN 09 APR 2022 AND 11 APR 2022)
     Route: 065
     Dates: start: 20220405
  3. ALLOPURINOL [Suspect]
     Active Substance: ALLOPURINOL
     Indication: Cardiac failure
     Dosage: 100 MG, QD
     Route: 065
     Dates: end: 202203
  4. ALLOPURINOL [Suspect]
     Active Substance: ALLOPURINOL
     Dosage: 100 MG (STARTED BETWEEN 09 APR 2022 AND 11 APR 2022)
     Route: 065
  5. DAPAGLIFLOZIN [Suspect]
     Active Substance: DAPAGLIFLOZIN
     Indication: Cardiac failure
     Dosage: UNK (STOPPED BETWEEN 20 MAR 2022 AND 01 APR 2022)
     Route: 065
  6. DAPAGLIFLOZIN [Suspect]
     Active Substance: DAPAGLIFLOZIN
     Indication: Cardiac failure
     Dosage: 10 MG, QD
     Route: 065
     Dates: start: 20220411
  7. ROSUVASTATIN [Concomitant]
     Active Substance: ROSUVASTATIN
     Indication: Product used for unknown indication
     Dosage: 1 DOSAGE FORM, QD
     Route: 065
  8. APIXABAN [Concomitant]
     Active Substance: APIXABAN
     Indication: Product used for unknown indication
     Dosage: 1 DOSAGE FORM, BID (MORNING AND EVENING)
     Route: 065
  9. FUROSEMIDE [Concomitant]
     Active Substance: FUROSEMIDE
     Indication: Product used for unknown indication
     Dosage: 0.5 DOSAGE FORM, QD (IN THE MORNING)
     Route: 065
  10. POTASSIUM CHLORIDE [Concomitant]
     Active Substance: POTASSIUM CHLORIDE
     Indication: Product used for unknown indication
     Dosage: 2 DOSAGE FORM, QD
     Route: 065
  11. ACETAMINOPHEN [Concomitant]
     Active Substance: ACETAMINOPHEN
     Indication: Product used for unknown indication
     Dosage: 3 DOSAGE FORM, PRN (PER DAY IF NEEDED)
     Route: 065
  12. LEVOTHYROXINE [Concomitant]
     Active Substance: LEVOTHYROXINE
     Indication: Product used for unknown indication
     Dosage: 1 DOSAGE FORM, QD (1 TABLET IN THE MORNING)
     Route: 065
  13. COLCHICINE [Concomitant]
     Active Substance: COLCHICINE
     Indication: Product used for unknown indication
     Dosage: 1 DOSAGE FORM, BID (1 TABLET MORNING AND EVENING UNTIL CONSULTATION)
     Route: 065

REACTIONS (9)
  - Vascular purpura [Recovering/Resolving]
  - Atrial fibrillation [Unknown]
  - Pustular psoriasis [Recovering/Resolving]
  - Glucose tolerance impaired [Unknown]
  - Epistaxis [Unknown]
  - COVID-19 [Unknown]
  - Gout [Unknown]
  - Vertigo [Unknown]
  - Hypotension [Unknown]

NARRATIVE: CASE EVENT DATE: 20210601
